FAERS Safety Report 26116744 (Version 1)
Quarter: 2025Q4

REPORT INFORMATION
  Report Type: Spontaneous
  Country: US (occurrence: US)
  Receive Date: 20251203
  Receipt Date: 20251203
  Transmission Date: 20260118
  Serious: Yes (Hospitalization, Other)
  Sender: MYLAN
  Company Number: US-MYLANLABS-2025M1101623

PATIENT
  Sex: Male

DRUGS (7)
  1. CLOZAPINE [Interacting]
     Active Substance: CLOZAPINE
     Indication: Antipsychotic therapy
     Dosage: 300 MILLIGRAM, QD
  2. CLOZAPINE [Interacting]
     Active Substance: CLOZAPINE
     Indication: Schizoaffective disorder
  3. RISPERIDONE [Suspect]
     Active Substance: RISPERIDONE
     Indication: Antipsychotic therapy
     Dosage: 100 MILLIGRAM, MONTHLY
  4. RISPERIDONE [Suspect]
     Active Substance: RISPERIDONE
     Indication: Schizoaffective disorder
  5. RIOCIGUAT [Interacting]
     Active Substance: RIOCIGUAT
     Indication: Pulmonary hypertension
     Dosage: INITIAL DOSE NOT STATED
  6. RIOCIGUAT [Interacting]
     Active Substance: RIOCIGUAT
     Dosage: 2.5 MILLIGRAM, TID
  7. VALPROIC ACID [Concomitant]
     Active Substance: VALPROIC ACID
     Indication: Schizoaffective disorder
     Dosage: 1500 MILLIGRAM, QD
     Route: 065

REACTIONS (11)
  - Pulmonary hypertension [Recovered/Resolved]
  - Toxicity to various agents [Recovered/Resolved]
  - Mental status changes [Recovered/Resolved]
  - Fatigue [Recovered/Resolved]
  - Gait disturbance [Recovered/Resolved]
  - Dyskinesia [Recovered/Resolved]
  - Dysarthria [Recovered/Resolved]
  - Delirium [Recovered/Resolved]
  - Abdominal distension [Recovered/Resolved]
  - Drug interaction [Recovered/Resolved]
  - Acute kidney injury [Recovered/Resolved]
